FAERS Safety Report 8909104 (Version 4)
Quarter: 2012Q4

REPORT INFORMATION
  Report Type: 
  Country: US (occurrence: US)
  Receive Date: 20121114
  Receipt Date: 20121226
  Transmission Date: 20130627
  Serious: Yes (Other)
  Sender: FDA-Public Use
  Company Number: US-PFIZER INC-2012283142

PATIENT
  Age: 82 Year
  Sex: Female
  Weight: 73 kg

DRUGS (6)
  1. NITROSTAT [Suspect]
     Indication: ANGINAL PAIN
     Dosage: 0.4 mg, as needed
     Route: 048
  2. LIPITOR [Suspect]
     Indication: HIGH CHOLESTEROL
     Dosage: 40 mg, 1x/day
     Route: 048
  3. PROTONIX [Suspect]
     Indication: ACID REFLUX (ESOPHAGEAL)
     Dosage: 40 mg, 1x/day
     Route: 048
  4. TOPROL XL [Concomitant]
     Dosage: 25 mg, 1x/day
  5. PROLIA [Concomitant]
     Dosage: Unknown dose
  6. ENALAPRIL [Concomitant]
     Indication: BLOOD PRESSURE HIGH
     Dosage: Unknwon dose; twice daily

REACTIONS (4)
  - Glaucoma [Unknown]
  - Hip fracture [Unknown]
  - Fall [Unknown]
  - Lower limb fracture [Unknown]
